FAERS Safety Report 15539083 (Version 1)
Quarter: 2018Q4

REPORT INFORMATION
  Report Type: Spontaneous
  Country: US (occurrence: US)
  Receive Date: 20181022
  Receipt Date: 20181022
  Transmission Date: 20190205
  Serious: No
  Sender: FDA-Public Use
  Company Number: US-TEIKOKU PHARMA USA-TPU2018-00601

PATIENT
  Age: 49 Year
  Sex: Female
  Weight: 85.81 kg

DRUGS (7)
  1. LIDODERM [Suspect]
     Active Substance: LIDOCAINE
     Indication: NERVE INJURY
  2. BOTOX [Concomitant]
     Active Substance: ONABOTULINUMTOXINA
     Indication: NEUROMA
  3. LIDODERM [Suspect]
     Active Substance: LIDOCAINE
     Indication: DYSTONIA
  4. LIDODERM [Suspect]
     Active Substance: LIDOCAINE
     Indication: NEUROMA
  5. BOTOX [Concomitant]
     Active Substance: ONABOTULINUMTOXINA
     Indication: MIGRAINE
  6. MIGRAINE MEDICATION, PAIN MEDICATIONS, ANTI-INFLAMMATORIES [Concomitant]
  7. LIDODERM [Suspect]
     Active Substance: LIDOCAINE
     Indication: TORTICOLLIS
     Dosage: APPLIED ON SHOULDER BLADE, BACK, PECTORALIS OR ANKLE, ^I WOULD USE ABOUT 3 PATCHES^ EVERY 12 HOURS O
     Route: 061

REACTIONS (4)
  - Migraine [Not Recovered/Not Resolved]
  - Expired product administered [Unknown]
  - Mobility decreased [Not Recovered/Not Resolved]
  - Therapeutic response unexpected [Unknown]

NARRATIVE: CASE EVENT DATE: 201807
